FAERS Safety Report 17994019 (Version 1)
Quarter: 2020Q3

REPORT INFORMATION
  Report Type: Spontaneous
  Country: US (occurrence: US)
  Receive Date: 20200707
  Receipt Date: 20200707
  Transmission Date: 20201103
  Serious: Yes (Other)
  Sender: FDA-Public Use
  Company Number: None

PATIENT
  Age: 50 Year
  Sex: Female
  Weight: 90.45 kg

DRUGS (4)
  1. AMLODIPINE [Concomitant]
     Active Substance: AMLODIPINE BESYLATE
  2. ART NATURALS UNSCENTED [Suspect]
     Active Substance: ALCOHOL
     Indication: INFECTION PROPHYLAXIS
     Dosage: ?          QUANTITY:8 OUNCE(S);?
     Route: 061
     Dates: start: 20200707, end: 20200707
  3. WIXELA INHUB [Concomitant]
     Active Substance: FLUTICASONE PROPIONATE\SALMETEROL XINAFOATE
  4. OLSMARTEN [Concomitant]

REACTIONS (8)
  - Asthma [None]
  - Application site burn [None]
  - Product quality issue [None]
  - Paraesthesia [None]
  - Chemical burn [None]
  - Nausea [None]
  - Palpitations [None]
  - Product odour abnormal [None]

NARRATIVE: CASE EVENT DATE: 20200707
